FAERS Safety Report 15450945 (Version 1)
Quarter: 2018Q4

REPORT INFORMATION
  Report Type: Spontaneous
  Country: US (occurrence: US)
  Receive Date: 20181001
  Receipt Date: 20181001
  Transmission Date: 20190204
  Serious: No
  Sender: FDA-Public Use
  Company Number: US-ASTRAZENECA-2018SF22822

PATIENT
  Age: 809 Month
  Sex: Female
  Weight: 88.9 kg

DRUGS (9)
  1. METOPROLOL SUCCINATE. [Suspect]
     Active Substance: METOPROLOL SUCCINATE
     Indication: BLOOD PRESSURE ABNORMAL
     Route: 048
     Dates: start: 2018
  2. METFORMIN [Concomitant]
     Active Substance: METFORMIN HYDROCHLORIDE
     Indication: BLOOD GLUCOSE INCREASED
     Dates: start: 2005
  3. GLIMEPIRIDE. [Concomitant]
     Active Substance: GLIMEPIRIDE
     Indication: BLOOD PRESSURE INADEQUATELY CONTROLLED
     Dates: start: 2015
  4. ATENOLOL. [Suspect]
     Active Substance: ATENOLOL
     Indication: BLOOD PRESSURE ABNORMAL
     Route: 048
     Dates: end: 2018
  5. LOSARTAN POTASSIUM. [Concomitant]
     Active Substance: LOSARTAN POTASSIUM
     Indication: BLOOD PRESSURE INADEQUATELY CONTROLLED
  6. PANTOPRAZOLE SODIUM. [Concomitant]
     Active Substance: PANTOPRAZOLE SODIUM
     Indication: GASTRIC ULCER HAEMORRHAGE
     Dates: start: 201703
  7. VICODIN [Concomitant]
     Active Substance: ACETAMINOPHEN\HYDROCODONE BITARTRATE
     Indication: PAIN
     Dosage: AS REQUIRED
  8. RECLAST [Concomitant]
     Active Substance: ZOLEDRONIC ACID
     Indication: OSTEOPOROSIS
     Dosage: YEARLY
     Route: 042
     Dates: start: 20180212
  9. SYMBICORT [Suspect]
     Active Substance: BUDESONIDE\FORMOTEROL FUMARATE DIHYDRATE
     Indication: CHEMICAL BURN OF RESPIRATORY TRACT
     Dosage: 160-4.5 MCG 2 PUFFS TWICE A DAY
     Route: 055
     Dates: start: 201809, end: 20180915

REACTIONS (15)
  - Nervousness [Recovering/Resolving]
  - Oropharyngeal pain [Recovering/Resolving]
  - Blood glucose increased [Recovering/Resolving]
  - Migraine [Recovering/Resolving]
  - Pain [Recovering/Resolving]
  - Throat irritation [Recovering/Resolving]
  - Heart rate irregular [Recovering/Resolving]
  - Oesophageal pain [Recovering/Resolving]
  - Head titubation [Not Recovered/Not Resolved]
  - Paraesthesia [Unknown]
  - Oesophageal irritation [Recovering/Resolving]
  - Vasodilatation [Recovering/Resolving]
  - Tremor [Recovering/Resolving]
  - Heart rate increased [Recovering/Resolving]
  - Atrial fibrillation [Recovering/Resolving]

NARRATIVE: CASE EVENT DATE: 201809
